FAERS Safety Report 20675225 (Version 10)
Quarter: 2025Q3

REPORT INFORMATION
  Report Type: Spontaneous
  Country: US (occurrence: US)
  Receive Date: 20220405
  Receipt Date: 20250808
  Transmission Date: 20251021
  Serious: Yes (Other)
  Sender: PFIZER
  Company Number: US-PFIZER INC-202200464551

PATIENT
  Age: 69 Year
  Sex: Male
  Weight: 56.7 kg

DRUGS (2)
  1. BENEFIX [Suspect]
     Active Substance: COAGULATION FACTOR IX RECOMBINANT HUMAN\ISOPROPYL ALCOHOL
     Indication: Haemorrhage
  2. BENEFIX [Suspect]
     Active Substance: COAGULATION FACTOR IX RECOMBINANT HUMAN\ISOPROPYL ALCOHOL
     Dosage: 5800 IU, DAILY

REACTIONS (5)
  - Pneumonia [Unknown]
  - Haemorrhage [Not Recovered/Not Resolved]
  - Soft tissue haemorrhage [Unknown]
  - Injury [Unknown]
  - Impaired healing [Recovering/Resolving]
